FAERS Safety Report 8251620-8 (Version None)
Quarter: 2012Q2

REPORT INFORMATION
  Report Type: 
  Country: None (occurrence: None)
  Receive Date: 20120402
  Receipt Date: 20111228
  Transmission Date: 20120825
  Serious: No
  Sender: FDA-Public Use
  Company Number: US-ABBOTT-11P-163-0887245-00

PATIENT
  Sex: Male
  Weight: 79.45 kg

DRUGS (3)
  1. LOTRIL [Concomitant]
     Indication: HYPERTENSION
  2. ALPRAZOLAM [Concomitant]
     Indication: PANIC ATTACK
  3. ANDROGEL [Suspect]
     Indication: BLOOD TESTOSTERONE DECREASED
     Dosage: 2 PUMPS DAILY
     Dates: start: 20111101, end: 20111101

REACTIONS (1)
  - OEDEMA PERIPHERAL [None]
